FAERS Safety Report 7043967-8 (Version None)
Quarter: 2010Q4

REPORT INFORMATION
  Report Type: 
  Country: None (occurrence: None)
  Receive Date: 20101008
  Receipt Date: 20101008
  Transmission Date: 20110411
  Serious: Yes (Hospitalization)
  Sender: FDA-Public Use
  Company Number: None

PATIENT
  Age: 74 Year
  Sex: Male

DRUGS (2)
  1. CARBOPLATIN [Suspect]
     Dosage: 426 MG ONCE IV
     Route: 042
     Dates: start: 20100922, end: 20100922
  2. ETOPOSIDE [Suspect]
     Dosage: 198 MG OTHER IV
     Route: 042
     Dates: start: 20100922

REACTIONS (4)
  - FEBRILE NEUTROPENIA [None]
  - MUSCULOSKELETAL CHEST PAIN [None]
  - PYREXIA [None]
  - VOMITING [None]
